FAERS Safety Report 6931598-7 (Version None)
Quarter: 2010Q3

REPORT INFORMATION
  Report Type: 
  Country: None (occurrence: None)
  Receive Date: 20100813
  Receipt Date: 20100505
  Transmission Date: 20110219
  Serious: No
  Sender: FDA-Public Use
  Company Number: 1000013644

PATIENT
  Age: 47 Year
  Sex: Female

DRUGS (9)
  1. SAVELLA [Suspect]
     Indication: FIBROMYALGIA
     Dosage: 12.5 MG (12.5 MG, 1 IN 1 D), ORAL, 25 MG (12.5 MG, 2 IN 1 D),  ORAL
     Route: 048
     Dates: start: 20100401, end: 20100401
  2. SAVELLA [Suspect]
     Indication: FIBROMYALGIA
     Dosage: 12.5 MG (12.5 MG, 1 IN 1 D), ORAL, 25 MG (12.5 MG, 2 IN 1 D),  ORAL
     Route: 048
     Dates: start: 20100401, end: 20100401
  3. SAVELLA [Suspect]
     Indication: FIBROMYALGIA
     Dosage: 50 MG (25 MG, 2 IN 1 D), ORAL
     Route: 048
     Dates: start: 20100401, end: 20100401
  4. METHADONE [Concomitant]
  5. LORTAB [Concomitant]
  6. FENTANYL CITRATE [Concomitant]
  7. LYRICA [Concomitant]
  8. XANAX [Concomitant]
  9. PHENERGAN [Concomitant]

REACTIONS (1)
  - DYSARTHRIA [None]
